FAERS Safety Report 9889373 (Version 1)
Quarter: 2014Q1

REPORT INFORMATION
  Report Type: Spontaneous
  Country: US (occurrence: US)
  Receive Date: 20140211
  Receipt Date: 20140211
  Transmission Date: 20141002
  Serious: Yes (Other)
  Sender: FDA-Public Use
  Company Number: US-ABBVIE-14P-163-1199513-00

PATIENT
  Age: 26 Year
  Sex: Male

DRUGS (11)
  1. CYCLOSPORINE [Suspect]
     Indication: IMMUNOSUPPRESSION
  2. RIBAVIRIN [Suspect]
     Route: 048
  3. PREDNISONE [Suspect]
     Indication: IMMUNOSUPPRESSION
  4. IMMUNOGLOBULIN [Suspect]
     Indication: HYPOGAMMAGLOBULINAEMIA
     Dosage: 2 DOSES
     Route: 042
  5. POSACONAZOLE [Concomitant]
     Indication: PROPHYLAXIS
  6. VALGANCICLOVIR [Concomitant]
     Indication: PROPHYLAXIS
  7. TRIMETHOPRIM SULFAMETHOXAZOLE [Concomitant]
     Indication: ANTIFUNGAL PROPHYLAXIS
  8. TACROLIMUS [Concomitant]
     Indication: PRODUCT USED FOR UNKNOWN INDICATION
  9. MYCOPHENOLATE MOFETIL [Concomitant]
     Indication: PRODUCT USED FOR UNKNOWN INDICATION
  10. AZITHROMYCIN [Concomitant]
     Indication: PROPHYLAXIS
     Route: 048
  11. OXYGEN [Concomitant]
     Indication: PRODUCT USED FOR UNKNOWN INDICATION
     Dosage: 3L/MIN VIA NASAL CANNULA

REACTIONS (5)
  - Transplant rejection [Recovered/Resolved]
  - Toxicity to various agents [Not Recovered/Not Resolved]
  - Renal impairment [Not Recovered/Not Resolved]
  - White blood cell count decreased [Not Recovered/Not Resolved]
  - Platelet count decreased [Not Recovered/Not Resolved]
